FAERS Safety Report 16870874 (Version 3)
Quarter: 2019Q4

REPORT INFORMATION
  Report Type: Report from Study
  Country: US (occurrence: US)
  Receive Date: 20190930
  Receipt Date: 20191202
  Transmission Date: 20200122
  Serious: Yes (Hospitalization, Other)
  Sender: FDA-Public Use
  Company Number: US-CLOVIS ONCOLOGY-CLO-2019-001566

PATIENT
  Sex: Female

DRUGS (3)
  1. RUBRACA [Suspect]
     Active Substance: RUCAPARIB CAMSYLATE
     Dosage: 500 MG, BID
     Route: 048
     Dates: start: 20190715, end: 20190929
  2. RUBRACA [Suspect]
     Active Substance: RUCAPARIB CAMSYLATE
     Indication: OVARIAN CANCER
     Dosage: 600 MG, BID
     Route: 048
     Dates: start: 20190404
  3. RUBRACA [Suspect]
     Active Substance: RUCAPARIB CAMSYLATE
     Dosage: UNKNOWN
     Dates: start: 20191014, end: 20191125

REACTIONS (7)
  - Back pain [Recovering/Resolving]
  - Pleural effusion [Recovering/Resolving]
  - White blood cell count increased [Recovering/Resolving]
  - Dyspnoea [Recovering/Resolving]
  - Ovarian cancer recurrent [Unknown]
  - Fatigue [Recovering/Resolving]
  - Product dose omission [Unknown]

NARRATIVE: CASE EVENT DATE: 2019
